FAERS Safety Report 15265828 (Version 1)
Quarter: 2018Q3

REPORT INFORMATION
  Report Type: Report from Study
  Country: CN (occurrence: CN)
  Receive Date: 20180810
  Receipt Date: 20180810
  Transmission Date: 20181010
  Serious: Yes (Other)
  Sender: FDA-Public Use
  Company Number: CN-TAKEDA-2018MPI010420

PATIENT
  Age: 66 Year
  Sex: Male

DRUGS (1)
  1. VELCADE [Suspect]
     Active Substance: BORTEZOMIB
     Indication: MANTLE CELL LYMPHOMA
     Dosage: 2.4 MG, UNK
     Route: 065
     Dates: start: 20180705

REACTIONS (15)
  - Leukopenia [Recovered/Resolved]
  - Thrombocytopenia [Recovered/Resolved]
  - Pyrexia [Recovered/Resolved]
  - Hypoalbuminaemia [Recovered/Resolved]
  - Constipation [Recovered/Resolved]
  - Agranulocytosis [Recovered/Resolved]
  - Sodium retention [Recovered/Resolved]
  - Hypokalaemia [Recovered/Resolved]
  - Neuralgia [Unknown]
  - Leukocytosis [Recovered/Resolved]
  - Herpes zoster [Recovered/Resolved]
  - Fluid retention [Recovered/Resolved]
  - Lung infection [Recovered/Resolved]
  - Diarrhoea [Recovered/Resolved]
  - Hypoxia [Recovered/Resolved]

NARRATIVE: CASE EVENT DATE: 2017
